FAERS Safety Report 13257482 (Version 1)
Quarter: 2017Q1

REPORT INFORMATION
  Report Type: Report from Study
  Country: ZA (occurrence: ZA)
  Receive Date: 20170221
  Receipt Date: 20170221
  Transmission Date: 20170428
  Serious: Yes (Hospitalization)
  Sender: FDA-Public Use
  Company Number: ZA-EMD SERONO-8142691

PATIENT
  Age: 41 Year
  Sex: Female

DRUGS (1)
  1. REBIF [Suspect]
     Active Substance: INTERFERON BETA-1A
     Indication: MULTIPLE SCLEROSIS
     Dates: start: 20170209

REACTIONS (2)
  - Coma [Unknown]
  - Seizure [Unknown]

NARRATIVE: CASE EVENT DATE: 20170209
